FAERS Safety Report 4548896-7 (Version None)
Quarter: 2004Q4

REPORT INFORMATION
  Report Type: 
  Country: None (occurrence: None)
  Receive Date: 20041227
  Receipt Date: 20041123
  Transmission Date: 20050328
  Serious: No
  Sender: FDA-Public Use
  Company Number: 04P-163-0281266-00

PATIENT
  Age: 69 Year
  Sex: Female
  Weight: 47.6277 kg

DRUGS (5)
  1. HUMIRA [Suspect]
     Indication: RHEUMATOID ARTHRITIS
     Dosage: 40 MG, EVERY 1.5 WEEKS, SUBCUTANEOUS
     Route: 058
     Dates: start: 20041001, end: 20041121
  2. HYDROXYCHLOROQUINE PHOSPHATE [Concomitant]
  3. PREDNISONE [Concomitant]
  4. M.V.I. [Concomitant]
  5. HORMONES [Concomitant]

REACTIONS (4)
  - ARTHRITIS [None]
  - INJECTION SITE BURNING [None]
  - INJECTION SITE HAEMORRHAGE [None]
  - INJECTION SITE URTICARIA [None]
